FAERS Safety Report 4817702-5 (Version None)
Quarter: 2005Q4

REPORT INFORMATION
  Report Type: 
  Country: None (occurrence: None)
  Receive Date: 20051101
  Receipt Date: 20051101
  Transmission Date: 20060501
  Serious: Yes (Hospitalization)
  Sender: FDA-Public Use
  Company Number: None

PATIENT
  Sex: Male
  Weight: 81.6475 kg

DRUGS (3)
  1. ZOCOR [Suspect]
     Indication: ARTERIOSCLEROSIS CORONARY ARTERY
     Dosage: 40 MG 1 DAILY - PO
     Route: 048
  2. ZOCOR [Suspect]
     Indication: CORONARY ARTERY SURGERY
     Dosage: 40 MG 1 DAILY - PO
     Route: 048
  3. ZOCOR [Suspect]
     Indication: HYPERLIPIDAEMIA
     Dosage: 40 MG 1 DAILY - PO
     Route: 048

REACTIONS (2)
  - CHEST PAIN [None]
  - MYALGIA [None]
